FAERS Safety Report 7662145-2 (Version None)
Quarter: 2011Q3

REPORT INFORMATION
  Report Type: 
  Country: None (occurrence: None)
  Receive Date: 20110805
  Receipt Date: 20101201
  Transmission Date: 20111222
  Serious: No
  Sender: FDA-Public Use
  Company Number: US-ABBOTT-10P-163-0689329-00

PATIENT
  Sex: Male
  Weight: 91.708 kg

DRUGS (6)
  1. CRESTOR [Concomitant]
     Indication: BLOOD CHOLESTEROL INCREASED
  2. NIASPAN [Suspect]
     Indication: BLOOD CHOLESTEROL INCREASED
     Dates: start: 20101122
  3. LISINOPRIL [Concomitant]
     Indication: HYPERTENSION
  4. FISH OIL [Concomitant]
     Indication: PRODUCT USED FOR UNKNOWN INDICATION
  5. NIASPAN [Suspect]
     Indication: ARTERIOSCLEROSIS
  6. BYSTOLIC [Concomitant]
     Indication: HYPERTENSION

REACTIONS (5)
  - PRURITUS [None]
  - DIZZINESS [None]
  - FACE OEDEMA [None]
  - NASOPHARYNGITIS [None]
  - MYALGIA [None]
